FAERS Safety Report 17807348 (Version 1)
Quarter: 2020Q2

REPORT INFORMATION
  Report Type: Spontaneous
  Country: GB (occurrence: GB)
  Receive Date: 20200520
  Receipt Date: 20200520
  Transmission Date: 20200714
  Serious: Yes (Other)
  Sender: FDA-Public Use
  Company Number: GB-TEVA-2020-GB-1236413

PATIENT
  Age: 55 Year
  Sex: Female
  Weight: 62 kg

DRUGS (6)
  1. FEMOSTON [Concomitant]
     Active Substance: DYDROGESTERONE\ESTRADIOL
     Dosage: 1 DOSAGEFORM
     Dates: start: 20200221
  2. KLIOFEM [Concomitant]
     Active Substance: ESTRADIOL\NORETHINDRONE ACETATE
     Dosage: 1 DOSAGEFORM
     Dates: start: 20190215, end: 20200221
  3. DYMISTA [Concomitant]
     Active Substance: AZELASTINE HYDROCHLORIDE\FLUTICASONE PROPIONATE
     Dosage: PUFF:2 DOSAGEFORM
     Dates: start: 20190522
  4. NITROFURANTOIN. [Suspect]
     Active Substance: NITROFURANTOIN
     Dosage: 200 MILLIGRAM
     Dates: start: 20200406, end: 20200413
  5. ESTRADIOL. [Concomitant]
     Active Substance: ESTRADIOL
     Dosage: INSERT ONE DAILY FOR TWO WEEKS THEN REDUCE TO ONE.
     Dates: start: 20200221
  6. NITROFURANTOIN. [Suspect]
     Active Substance: NITROFURANTOIN
     Dosage: 100 MILLIGRAM
     Route: 048
     Dates: start: 20200417, end: 20200426

REACTIONS (1)
  - Rash [Recovering/Resolving]

NARRATIVE: CASE EVENT DATE: 20200425
